FAERS Safety Report 5124573-9 (Version None)
Quarter: 2006Q3

REPORT INFORMATION
  Report Type: 
  Country: None (occurrence: None)
  Receive Date: 20060821
  Receipt Date: 20060512
  Transmission Date: 20061208
  Serious: No
  Sender: FDA-Public Use
  Company Number: TPA2006A00827

PATIENT
  Age: 77 Year
  Sex: Male
  Weight: 102.0593 kg

DRUGS (5)
  1. ROZEREM [Suspect]
     Indication: INSOMNIA
     Dosage: 8 MG; HS; PER ORAL
     Route: 048
     Dates: start: 20060501, end: 20060503
  2. LISINOPRIL [Concomitant]
  3. THYROXINE (LEVOTHYROXINE SODIUM) (100 MICROGRAM) [Concomitant]
  4. FLOMAX (TAMSULOSIN)(0.4 MILLIGRAM) [Concomitant]
  5. CRESTOR [Concomitant]

REACTIONS (3)
  - DIZZINESS [None]
  - HYPERSOMNIA [None]
  - SOMNOLENCE [None]
